FAERS Safety Report 4390312-2 (Version None)
Quarter: 2004Q2

REPORT INFORMATION
  Report Type: 
  Country: None (occurrence: None)
  Receive Date: 20040630
  Receipt Date: 20040609
  Transmission Date: 20050107
  Serious: Yes (Hospitalization, Other)
  Sender: FDA-Public Use
  Company Number: DE9338807NOV2002

PATIENT
  Age: 47 Year
  Sex: Male

DRUGS (7)
  1. RAPAMUNE [Suspect]
     Indication: IMMUNOSUPPRESSANT DRUG THERAPY
     Dosage: 6 MG 1X PER 1 DAY, ORAL
     Route: 048
  2. RAPAMUNE [Suspect]
     Indication: IMMUNOSUPPRESSANT DRUG THERAPY
     Dosage: 2 MG 1X PER 1 DAY, ORAL
     Route: 048
  3. RAPAMUNE [Suspect]
     Indication: IMMUNOSUPPRESSANT DRUG THERAPY
     Dosage: 1 MG 1X PER 1 DAY, ORAL
     Route: 048
  4. PREDNISONE TAB [Suspect]
     Dosage: 0.5MG/KG 1X PER DAY POST OPERATIVELY UNTIL ORAL TOLERANCE
     Route: 048
  5. PROGRAF [Suspect]
     Dosage: 1 MG 2X PER 1 DAY, ORAL
     Route: 048
  6. CEFTAZIDIME [Concomitant]
  7. METHYLPREDNISOLONE [Concomitant]

REACTIONS (7)
  - ANASTOMOTIC COMPLICATION [None]
  - COMPLICATIONS OF TRANSPLANT SURGERY [None]
  - DYSPNOEA [None]
  - IMMUNOSUPPRESSION [None]
  - IMPAIRED HEALING [None]
  - NECROSIS [None]
  - PSEUDOMONAS INFECTION [None]
